FAERS Safety Report 11753965 (Version 2)
Quarter: 2015Q4

REPORT INFORMATION
  Report Type: Spontaneous
  Country: JP (occurrence: JP)
  Receive Date: 20151119
  Receipt Date: 20151120
  Transmission Date: 20160304
  Serious: No
  Sender: FDA-Public Use
  Company Number: JP-ELI_LILLY_AND_COMPANY-JP201510008494

PATIENT
  Age: 76 Year
  Sex: Female

DRUGS (5)
  1. FORTEO [Suspect]
     Active Substance: TERIPARATIDE
     Indication: PRODUCT USED FOR UNKNOWN INDICATION
     Dosage: UNK
     Route: 058
     Dates: start: 20150802
  2. OPALMON [Concomitant]
     Active Substance: LIMAPROST
     Indication: SPONDYLOLISTHESIS
     Dosage: UNK
     Route: 048
     Dates: start: 20120719
  3. EDIROL [Concomitant]
     Active Substance: ELDECALCITOL
     Dosage: UNK
     Route: 048
     Dates: start: 20120920
  4. GLAKAY [Concomitant]
     Active Substance: MENATETRENONE
     Dosage: UNK
     Route: 048
     Dates: start: 201208
  5. ADETPHOS [Concomitant]
     Active Substance: ADENOSINE TRIPHOSPHATE
     Indication: SPONDYLOLISTHESIS
     Dosage: UNK
     Route: 048
     Dates: start: 201208

REACTIONS (3)
  - Dizziness [Unknown]
  - Asthenia [Unknown]
  - Grip strength decreased [Recovered/Resolved]

NARRATIVE: CASE EVENT DATE: 201509
